FAERS Safety Report 7646980-2 (Version None)
Quarter: 2011Q3

REPORT INFORMATION
  Report Type: 
  Country: None (occurrence: None)
  Receive Date: 20110801
  Receipt Date: 20110719
  Transmission Date: 20111222
  Serious: Yes (Hospitalization)
  Sender: FDA-Public Use
  Company Number: JP-ELI_LILLY_AND_COMPANY-JP201105005830

PATIENT
  Age: 64 Year
  Sex: Female

DRUGS (2)
  1. FORTEO [Suspect]
     Indication: OSTEOPOROSIS
     Dosage: 60 UG, QD
     Route: 058
     Dates: start: 20110426
  2. ACETAMINOPHEN [Concomitant]
     Dosage: UNK
     Route: 048

REACTIONS (2)
  - SPINAL COMPRESSION FRACTURE [None]
  - HEADACHE [None]
